FAERS Safety Report 5256489-1 (Version None)
Quarter: 2007Q1

REPORT INFORMATION
  Report Type: 
  Country: None (occurrence: None)
  Receive Date: 20070306
  Receipt Date: 20070302
  Transmission Date: 20070707
  Serious: Yes (Other)
  Sender: FDA-Public Use
  Company Number: JP-JPN-A200700765

PATIENT
  Age: 73 Year
  Sex: Male

DRUGS (8)
  1. FLUTICASONE PROPIONATE [Suspect]
     Indication: ASTHMA
     Dosage: 200MCG TWICE PER DAY
     Route: 055
     Dates: start: 20060718, end: 20061025
  2. LENDORMIN [Concomitant]
     Route: 048
  3. MEVALOTIN [Concomitant]
     Route: 048
  4. MUCODYNE [Concomitant]
     Route: 048
  5. CHINESE MEDICINE [Concomitant]
     Route: 048
  6. NORVASC [Concomitant]
     Route: 048
  7. IPD [Concomitant]
     Route: 048
  8. ONON [Concomitant]
     Route: 048

REACTIONS (1)
  - VOCAL CORD PARALYSIS [None]
